FAERS Safety Report 4921981-3 (Version None)
Quarter: 2006Q1

REPORT INFORMATION
  Report Type: 
  Country: None (occurrence: None)
  Receive Date: 20060223
  Receipt Date: 20060223
  Transmission Date: 20060701
  Serious: Yes (Hospitalization)
  Sender: FDA-Public Use
  Company Number: None

PATIENT
  Age: 65 Year
  Sex: Male
  Weight: 94.3482 kg

DRUGS (6)
  1. PREDNISONE [Suspect]
     Indication: RHEUMATOID ARTHRITIS
     Dosage: 60 MG PO DAILY
     Route: 048
  2. ASPIRIN [Concomitant]
  3. COMBIVENT [Concomitant]
  4. QUININE [Concomitant]
  5. LASIX [Concomitant]
  6. TYLENOL (CAPLET) [Concomitant]

REACTIONS (1)
  - DIABETES MELLITUS [None]
